FAERS Safety Report 7938094-9 (Version None)
Quarter: 2011Q4

REPORT INFORMATION
  Report Type: 
  Country: None (occurrence: None)
  Receive Date: 20111123
  Receipt Date: 20111121
  Transmission Date: 20120403
  Serious: No
  Sender: FDA-Public Use
  Company Number: US-PFIZER INC-2011284876

PATIENT
  Sex: Female
  Weight: 52 kg

DRUGS (2)
  1. PREMPRO [Suspect]
     Indication: HOT FLUSH
     Dosage: UNK, 1X/DAY
     Route: 048
     Dates: start: 20110801, end: 20111103
  2. PREMPRO [Suspect]
     Indication: NIGHT SWEATS

REACTIONS (2)
  - ALOPECIA [None]
  - RASH [None]
